FAERS Safety Report 6792387-X (Version None)
Quarter: 2010Q2

REPORT INFORMATION
  Report Type: 
  Country: None (occurrence: None)
  Receive Date: 20100624
  Receipt Date: 20081219
  Transmission Date: 20101027
  Serious: Yes (Other)
  Sender: FDA-Public Use
  Company Number: US-PFIZER INC-2008063453

PATIENT
  Sex: Female
  Weight: 85.7 kg

DRUGS (4)
  1. DEPO-SUBQ PROVERA 104 [Suspect]
     Dosage: 104 MG EVERY 11-13 WEEKS
     Route: 058
     Dates: start: 20060407, end: 20070726
  2. SPIRIVA [Concomitant]
     Indication: ASTHMA
  3. ALBUTEROL [Concomitant]
     Indication: ASTHMA
  4. PREDNISONE [Concomitant]
     Indication: ASTHMA

REACTIONS (1)
  - INJECTION SITE REACTION [None]
